FAERS Safety Report 6918134-6 (Version None)
Quarter: 2010Q3

REPORT INFORMATION
  Report Type: 
  Country: None (occurrence: None)
  Receive Date: 20100806
  Receipt Date: 20100726
  Transmission Date: 20110219
  Serious: Yes (Life-Threatening)
  Sender: FDA-Public Use
  Company Number: 2010AC0139

PATIENT
  Age: 19 Year
  Sex: Male
  Weight: 181.4388 kg

DRUGS (1)
  1. ADRENACLICK [Suspect]
     Indication: ANAPHYLACTIC REACTION
     Dosage: 03. MG, AS NEEDED
     Dates: start: 20100725, end: 20100725

REACTIONS (2)
  - DEVICE FAILURE [None]
  - DEVICE MALFUNCTION [None]
